FAERS Safety Report 24691836 (Version 2)
Quarter: 2024Q4

REPORT INFORMATION
  Report Type: Report from Study
  Country: BR (occurrence: BR)
  Receive Date: 20241203
  Receipt Date: 20241213
  Transmission Date: 20250115
  Serious: Yes (Hospitalization, Other)
  Sender: GLAXOSMITHKLINE
  Company Number: BR-GSK-BR2024AMR054824

PATIENT

DRUGS (17)
  1. MEPOLIZUMAB [Suspect]
     Active Substance: MEPOLIZUMAB
     Indication: Asthma
     Dosage: 100 MG, MO
  2. MEPOLIZUMAB [Suspect]
     Active Substance: MEPOLIZUMAB
     Dosage: 100 MG, Q4W
     Route: 058
  3. MEPOLIZUMAB [Suspect]
     Active Substance: MEPOLIZUMAB
     Indication: Asthma
     Dosage: 100 MG
     Route: 042
     Dates: start: 20230922
  4. FLUTICASONE PROPIONATE\FORMOTEROL FUMARATE [Concomitant]
     Active Substance: FLUTICASONE PROPIONATE\FORMOTEROL FUMARATE
     Indication: Product used for unknown indication
     Dosage: UNK, EVERY 8 HOURS
  5. Novalgin [Concomitant]
     Indication: Product used for unknown indication
     Dosage: UNK
  6. AMOXICILLIN\CLAVULANATE POTASSIUM [Concomitant]
     Active Substance: AMOXICILLIN\CLAVULANATE POTASSIUM
     Indication: Asthma
     Dosage: 875 MG, FOR 10 DAYS
  7. CEFUROXIME [Concomitant]
     Active Substance: CEFUROXIME
     Indication: Product used for unknown indication
     Dosage: UNK, FOR 10 DAYS
  8. PREDNISOLONE [Concomitant]
     Active Substance: PREDNISOLONE
     Indication: Product used for unknown indication
     Dosage: 40 MG
  9. MOMETASONE FUROATE [Concomitant]
     Active Substance: MOMETASONE FUROATE
     Indication: Product used for unknown indication
     Dosage: UNK
  10. ACETYLCYSTEINE [Concomitant]
     Active Substance: ACETYLCYSTEINE
     Indication: Product used for unknown indication
     Dosage: UNK
  11. ALBUTEROL [Concomitant]
     Active Substance: ALBUTEROL
     Indication: Product used for unknown indication
     Dosage: UNK, QID
  12. CYSTEINE [Concomitant]
     Active Substance: CYSTEINE
     Indication: Cough
     Dosage: UNK
  13. MONTELUKAST [Concomitant]
     Active Substance: MONTELUKAST
     Indication: Asthma
     Dosage: UNK
  14. PREDNISOLONE [Concomitant]
     Active Substance: PREDNISOLONE
     Indication: Asthma
     Dosage: 40 MG, FOR 15 DAYS
  15. NASOAR [Concomitant]
     Indication: Nasal discomfort
     Dosage: UNK
  16. MOXIFLOXACIN [Concomitant]
     Active Substance: MOXIFLOXACIN
     Indication: Product used for unknown indication
     Dosage: UNK
     Dates: start: 20241126
  17. BILASTINE [Concomitant]
     Active Substance: BILASTINE
     Indication: Product used for unknown indication
     Dosage: UNK

REACTIONS (15)
  - Illness [Unknown]
  - Asthma [Not Recovered/Not Resolved]
  - Cataract [Unknown]
  - Diabetes mellitus [Unknown]
  - Headache [Recovered/Resolved]
  - Pain [Recovered/Resolved]
  - Asthenia [Recovered/Resolved]
  - Haemoptysis [Not Recovered/Not Resolved]
  - Chronic sinusitis [Unknown]
  - Ageusia [Unknown]
  - Anosmia [Unknown]
  - Cough [Not Recovered/Not Resolved]
  - Lung disorder [Unknown]
  - Inappropriate schedule of product administration [Unknown]
  - Product dose omission issue [Unknown]

NARRATIVE: CASE EVENT DATE: 20230922
